FAERS Safety Report 14825518 (Version 2)
Quarter: 2018Q2

REPORT INFORMATION
  Report Type: Report from Study
  Country: US (occurrence: US)
  Receive Date: 20180430
  Receipt Date: 20180530
  Transmission Date: 20180711
  Serious: No
  Sender: FDA-Public Use
  Company Number: US-009507513-1804USA009386

PATIENT
  Sex: Female

DRUGS (1)
  1. IMPLANON [Suspect]
     Active Substance: ETONOGESTREL
     Dosage: 68 MG ONE IMPLANT, UNK
     Route: 059
     Dates: start: 201709

REACTIONS (3)
  - Peripheral swelling [Unknown]
  - Menorrhagia [Recovering/Resolving]
  - Implant site pain [Unknown]

NARRATIVE: CASE EVENT DATE: 2018
